FAERS Safety Report 5425065-X (Version None)
Quarter: 2007Q3

REPORT INFORMATION
  Report Type: 
  Country: None (occurrence: None)
  Receive Date: 20070824
  Receipt Date: 20070822
  Transmission Date: 20080115
  Serious: Yes (Other)
  Sender: FDA-Public Use
  Company Number: DE-BRISTOL-MYERS SQUIBB COMPANY-13882642

PATIENT
  Sex: Female

DRUGS (2)
  1. LYSODREN [Suspect]
     Route: 048
  2. CITALOPRAM [Concomitant]
     Indication: DEPRESSION

REACTIONS (3)
  - DRUG LEVEL BELOW THERAPEUTIC [None]
  - MALIGNANT NEOPLASM PROGRESSION [None]
  - SEPTIC SHOCK [None]
